FAERS Safety Report 4887188-3 (Version None)
Quarter: 2005Q4

REPORT INFORMATION
  Report Type: 
  Country: None (occurrence: None)
  Receive Date: 20051223
  Receipt Date: 20050118
  Transmission Date: 20060501
  Serious: Yes (Hospitalization, Other)
  Sender: FDA-Public Use
  Company Number: USA020515605

PATIENT
  Age: 16 Year
  Sex: Male

DRUGS (2)
  1. HUMALOG [Suspect]
     Indication: DIABETES MELLITUS
     Dosage: 19 U AS NEEDED
     Dates: start: 19950101
  2. HUMULIN L [Suspect]
     Indication: DIABETES MELLITUS
     Dosage: 95 U DAY
     Dates: start: 19940629

REACTIONS (5)
  - BLOOD GLUCOSE INCREASED [None]
  - DIABETIC KETOACIDOSIS [None]
  - DRUG INEFFECTIVE [None]
  - PSYCHOMOTOR HYPERACTIVITY [None]
  - URINE KETONE BODY PRESENT [None]
